FAERS Safety Report 25871297 (Version 1)
Quarter: 2025Q4

REPORT INFORMATION
  Report Type: Spontaneous
  Country: AU (occurrence: AU)
  Receive Date: 20251001
  Receipt Date: 20251001
  Transmission Date: 20260118
  Serious: Yes (Other)
  Sender: NOVO NORDISK
  Company Number: AU-NOVOPROD-1529905

PATIENT
  Age: 39 Year
  Sex: Female

DRUGS (5)
  1. LIRAGLUTIDE [Suspect]
     Active Substance: LIRAGLUTIDE
     Indication: Obesity
     Dosage: 0.6 MG, QD
     Dates: start: 20240207
  2. LIRAGLUTIDE [Suspect]
     Active Substance: LIRAGLUTIDE
     Dosage: UNK
  3. LIRAGLUTIDE [Suspect]
     Active Substance: LIRAGLUTIDE
     Dosage: 1.8 MG, QD
     Dates: end: 20240606
  4. FLUOXETINE [Concomitant]
     Active Substance: FLUOXETINE HYDROCHLORIDE
     Dosage: 40 MG, QD
  5. LEVONORGESTREL AND ETHINYL ESTRADIOL [Concomitant]
     Active Substance: ETHINYL ESTRADIOL\LEVONORGESTREL
     Dosage: 150 ?G/30 ?G DAILY

REACTIONS (1)
  - Drug-induced liver injury [Recovered/Resolved]

NARRATIVE: CASE EVENT DATE: 20240401
